FAERS Safety Report 5175577-1 (Version None)
Quarter: 2006Q4

REPORT INFORMATION
  Report Type: 
  Country: None (occurrence: None)
  Receive Date: 20061212
  Receipt Date: 20061212
  Transmission Date: 20070319
  Serious: No
  Sender: FDA-Public Use
  Company Number: None

PATIENT
  Age: 67 Year
  Sex: Female
  Weight: 90.5 kg

DRUGS (11)
  1. FLEETS PHOSPHOSODA FLEETS [Suspect]
     Indication: COLONOSCOPY
     Dosage: 8 OUNCES DAILY X1 DOSE PO
     Route: 048
  2. AVAPRO [Suspect]
     Indication: HYPERTENSION
     Dosage: 300MG DAILY PO
     Route: 048
  3. AVAPRO [Concomitant]
  4. DILACOR XR [Concomitant]
  5. LEVOTHROID [Concomitant]
  6. ASPIRIN [Concomitant]
  7. CALCIUM [Concomitant]
  8. VIT D [Concomitant]
  9. NASACORT AQ [Concomitant]
  10. ALLEGRA [Concomitant]
  11. ZOCOR [Concomitant]

REACTIONS (3)
  - HYPERTENSION [None]
  - NEPHROPATHY [None]
  - RENAL FAILURE CHRONIC [None]
